FAERS Safety Report 8360871-3 (Version None)
Quarter: 2012Q2

REPORT INFORMATION
  Report Type: 
  Country: None (occurrence: None)
  Receive Date: 20120515
  Receipt Date: 20120508
  Transmission Date: 20120825
  Serious: Yes (Death, Other)
  Sender: FDA-Public Use
  Company Number: US-JNJFOC-20120508825

PATIENT
  Age: 39 Year
  Sex: Male

DRUGS (4)
  1. AN UNKNOWN MEDICATION [Suspect]
     Indication: PRODUCT USED FOR UNKNOWN INDICATION
     Route: 065
  2. INVEGA SUSTENNA [Suspect]
     Indication: PRODUCT USED FOR UNKNOWN INDICATION
     Route: 030
  3. INVEGA SUSTENNA [Suspect]
     Route: 030
  4. GEODON [Suspect]
     Indication: PRODUCT USED FOR UNKNOWN INDICATION
     Route: 065

REACTIONS (7)
  - PANIC DISORDER [None]
  - ANXIETY [None]
  - ALCOHOL WITHDRAWAL SYNDROME [None]
  - DEPRESSION [None]
  - COMPLETED SUICIDE [None]
  - DRUG DEPENDENCE [None]
  - ABNORMAL BEHAVIOUR [None]
